FAERS Safety Report 12710419 (Version 1)
Quarter: 2016Q3

REPORT INFORMATION
  Report Type: Spontaneous
  Country: US (occurrence: US)
  Receive Date: 20160901
  Receipt Date: 20160901
  Transmission Date: 20161109
  Serious: No
  Sender: FDA-Public Use
  Company Number: None

PATIENT
  Sex: Female

DRUGS (1)
  1. IMATINIB MES TAB 400MG [Suspect]
     Active Substance: IMATINIB
     Indication: BREAST CANCER FEMALE

REACTIONS (2)
  - Fatigue [None]
  - Insomnia [None]
